FAERS Safety Report 6032018-X (Version None)
Quarter: 2009Q1

REPORT INFORMATION
  Report Type: 
  Country: None (occurrence: None)
  Receive Date: 20090108
  Receipt Date: 20081231
  Transmission Date: 20090719
  Serious: Yes (Hospitalization)
  Sender: FDA-Public Use
  Company Number: PHBS2008CN06733

PATIENT
  Age: 73 Year
  Sex: Male

DRUGS (2)
  1. VALSARTAN [Suspect]
     Indication: HYPERTENSION
     Dosage: 80 MG, QD
     Route: 048
  2. METOPROLOL TARTRATE [Concomitant]
     Indication: HYPERTENSION
     Dosage: 25 MG, BID
     Route: 065

REACTIONS (22)
  - ACUTE MYOCARDIAL INFARCTION [None]
  - ANTIPHOSPHOLIPID SYNDROME [None]
  - ARTERIOSCLEROSIS [None]
  - BLOOD FIBRINOGEN INCREASED [None]
  - CARDIOLIPIN ANTIBODY POSITIVE [None]
  - CAROTID ARTERY STENOSIS [None]
  - CAROTID ARTERY STENT INSERTION [None]
  - CEREBRAL CIRCULATORY FAILURE [None]
  - CEREBRAL INFARCTION [None]
  - CEREBRAL ISCHAEMIA [None]
  - COMA [None]
  - CORONARY ARTERIAL STENT INSERTION [None]
  - ENCEPHALOMALACIA [None]
  - MOBILITY DECREASED [None]
  - MUSCULAR WEAKNESS [None]
  - OEDEMA PERIPHERAL [None]
  - PAIN IN EXTREMITY [None]
  - PUPILLARY REFLEX IMPAIRED [None]
  - SNORING [None]
  - SOMNOLENCE [None]
  - SPEECH DISORDER [None]
  - TRANSIENT ISCHAEMIC ATTACK [None]
